FAERS Safety Report 5941596-8 (Version None)
Quarter: 2008Q4

REPORT INFORMATION
  Report Type: 
  Country: None (occurrence: None)
  Receive Date: 20081103
  Receipt Date: 20081021
  Transmission Date: 20090506
  Serious: Yes (Disabling)
  Sender: FDA-Public Use
  Company Number: 2008AP002852

PATIENT
  Sex: Male

DRUGS (2)
  1. RANITIDINE HYDROCHLORIDE [Suspect]
     Indication: PEPTIC ULCER
     Dosage: 300 MG; PO
     Route: 048
     Dates: start: 19960101, end: 20080701
  2. ESOMEPRAZOLE MAGNESIUM [Suspect]
     Indication: PEPTIC ULCER
     Dosage: 20 MG; PO
     Route: 048
     Dates: start: 20050101, end: 20080701

REACTIONS (2)
  - DYSTONIA [None]
  - TARDIVE DYSKINESIA [None]
